FAERS Safety Report 7222132-5 (Version None)
Quarter: 2011Q1

REPORT INFORMATION
  Report Type: 
  Country: None (occurrence: None)
  Receive Date: 20110103
  Receipt Date: 20101217
  Transmission Date: 20110831
  Serious: Yes (Death)
  Sender: FDA-Public Use
  Company Number: 2010005567

PATIENT
  Age: 76 Year
  Sex: Female

DRUGS (5)
  1. CRESTOR [Concomitant]
  2. HYDROMORPHONE HCL [Concomitant]
  3. CYTOTEC [Concomitant]
  4. ERLOTINIB (ERLOTINIB) (TABLET) (ERLOTINIB) [Suspect]
     Indication: LUNG CANCER METASTATIC
     Dosage: (150 MG, QD), ORAL
     Route: 048
     Dates: start: 20101105, end: 20101210
  5. PANTOLOC [Concomitant]

REACTIONS (18)
  - PRURITUS [None]
  - PNEUMONIA [None]
  - WEIGHT DECREASED [None]
  - GOITRE [None]
  - GENERAL PHYSICAL HEALTH DETERIORATION [None]
  - METASTASES TO BONE [None]
  - RIGHT VENTRICULAR FAILURE [None]
  - CEREBRAL ISCHAEMIA [None]
  - REFUSAL OF TREATMENT BY PATIENT [None]
  - HAEMOGLOBIN DECREASED [None]
  - CHRONIC OBSTRUCTIVE PULMONARY DISEASE [None]
  - HYPOALBUMINAEMIA [None]
  - ROSACEA [None]
  - DIARRHOEA [None]
  - METASTASES TO LUNG [None]
  - ATELECTASIS [None]
  - METASTASES TO CHEST WALL [None]
  - METASTASES TO PLEURA [None]
